FAERS Safety Report 6059943-8 (Version None)
Quarter: 2009Q1

REPORT INFORMATION
  Report Type: 
  Country: None (occurrence: None)
  Receive Date: 20090130
  Receipt Date: 20090121
  Transmission Date: 20090719
  Serious: Yes (Hospitalization, Other)
  Sender: FDA-Public Use
  Company Number: US-B.I. PHARMACEUTICALS,INC./RIDGEFIELD-2009-BP-00780BP

PATIENT
  Sex: Female

DRUGS (7)
  1. DULCOLAX [Suspect]
     Indication: GASTRIC DISORDER
     Route: 048
     Dates: start: 19940101
  2. GAS-X REGULAR STRENGTH [Suspect]
     Indication: GASTRIC DISORDER
     Route: 048
  3. GAS-X EXTRA STRENGTH SOFTGELS [Suspect]
     Indication: GASTRIC DISORDER
     Route: 048
  4. GAS-X THIN STRIPS [Suspect]
     Indication: GASTRIC DISORDER
     Route: 048
  5. GAS-X EXTSTR CHEWABLE TABS CHERRY CREME [Suspect]
     Indication: GASTRIC DISORDER
     Route: 048
  6. CYTOTEC [Suspect]
     Indication: GASTRIC DISORDER
     Route: 048
     Dates: start: 19940101
  7. PROPULSID [Concomitant]

REACTIONS (11)
  - ABDOMINAL PAIN [None]
  - COLECTOMY [None]
  - CONSTIPATION [None]
  - DISEASE PROGRESSION [None]
  - DRUG INEFFECTIVE [None]
  - DYSPEPSIA [None]
  - FAECALOMA [None]
  - GASTROINTESTINAL HYPOMOTILITY [None]
  - INTESTINAL FUNCTIONAL DISORDER [None]
  - OVERDOSE [None]
  - SMALL INTESTINAL RESECTION [None]
